FAERS Safety Report 4745555-2 (Version None)
Quarter: 2005Q3

REPORT INFORMATION
  Report Type: 
  Country: None (occurrence: None)
  Receive Date: 20050809
  Receipt Date: 20041006
  Transmission Date: 20060218
  Serious: Yes (Hospitalization)
  Sender: FDA-Public Use
  Company Number: 382606

PATIENT
  Age: 28 Year
  Sex: Male

DRUGS (1)
  1. CELLCEPT [Suspect]
     Indication: PSORIASIS
     Dosage: 1000 MG DAILY ORAL
     Route: 048
     Dates: start: 20040921, end: 20041002

REACTIONS (4)
  - EYE SWELLING [None]
  - HYPERSENSITIVITY [None]
  - SWELLING FACE [None]
  - WOUND SECRETION [None]
